FAERS Safety Report 16823272 (Version 1)
Quarter: 2019Q3

REPORT INFORMATION
  Report Type: Report from Study
  Country: US (occurrence: US)
  Receive Date: 20190918
  Receipt Date: 20190918
  Transmission Date: 20191005
  Serious: Yes (Hospitalization)
  Sender: FDA-Public Use
  Company Number: US-MYLANLABS-2019M1087675

PATIENT
  Age: 81 Year

DRUGS (1)
  1. METHOTREXATE. [Suspect]
     Active Substance: METHOTREXATE
     Indication: RHEUMATOID ARTHRITIS
     Dosage: PATIENT HAD BEEN RECEIVING METHOTREXATE 7.5MG INSTEAD OF WEEKLY FOR 13 DAYS (TOTAL DOSE 97.5MG)
     Route: 048

REACTIONS (3)
  - Inappropriate schedule of product administration [Unknown]
  - Accidental overdose [Unknown]
  - Stomatitis [Unknown]
